FAERS Safety Report 25379165 (Version 1)
Quarter: 2025Q2

REPORT INFORMATION
  Report Type: Spontaneous
  Country: US (occurrence: None)
  Receive Date: 20250529
  Receipt Date: 20250529
  Transmission Date: 20250716
  Serious: Yes (Hospitalization, Disabling, Other)
  Sender: FDA-CTU
  Company Number: None

PATIENT
  Age: 34 Year
  Sex: Male
  Weight: 81 kg

DRUGS (1)
  1. FINASTERIDE [Suspect]
     Active Substance: FINASTERIDE
     Indication: Androgenetic alopecia
     Dosage: FREQUENCY : AT BEDTIME;?
     Route: 061
     Dates: start: 20230530

REACTIONS (12)
  - Nervous system disorder [None]
  - Emotional disorder [None]
  - Mental disorder [None]
  - Impaired quality of life [None]
  - Withdrawal syndrome [None]
  - Anxiety [None]
  - Depression [None]
  - Cognitive disorder [None]
  - Disturbance in attention [None]
  - Job dissatisfaction [None]
  - Partner stress [None]
  - Suicidal ideation [None]

NARRATIVE: CASE EVENT DATE: 20241202
